FAERS Safety Report 5081181-6 (Version None)
Quarter: 2006Q3

REPORT INFORMATION
  Report Type: 
  Country: None (occurrence: None)
  Receive Date: 20060810
  Receipt Date: 20060801
  Transmission Date: 20061208
  Serious: Yes (Other)
  Sender: FDA-Public Use
  Company Number: 2006-07-1914

PATIENT
  Age: 49 Year
  Sex: Female

DRUGS (9)
  1. PEG-INTRON [Suspect]
     Indication: HEPATITIS C
     Dosage: SUBCUTANEOUS
     Route: 058
     Dates: start: 20060306, end: 20060706
  2. REBETOL [Suspect]
     Indication: HEPATITIS C
     Dosage: ORAL
     Route: 048
     Dates: start: 20060306, end: 20060706
  3. AMBIEN [Concomitant]
  4. FAMOTIDINE [Concomitant]
  5. KLONOPIN [Concomitant]
  6. PAXIL [Concomitant]
  7. MEGACE [Concomitant]
  8. MIRALAX [Concomitant]
  9. CYMBALTA (DULOXETINE HCL) [Concomitant]

REACTIONS (6)
  - ANOREXIA [None]
  - CONDITION AGGRAVATED [None]
  - FALL [None]
  - HEADACHE [None]
  - OSTEOARTHRITIS [None]
  - SPINAL OSTEOARTHRITIS [None]
